FAERS Safety Report 5136889-0 (Version None)
Quarter: 2006Q4

REPORT INFORMATION
  Report Type: 
  Country: None (occurrence: None)
  Receive Date: 20061023
  Receipt Date: 20061009
  Transmission Date: 20070319
  Serious: Yes (Hospitalization, Disabling)
  Sender: FDA-Public Use
  Company Number: 2006124176

PATIENT
  Sex: Male
  Weight: 63 kg

DRUGS (14)
  1. NEURONTIN [Suspect]
     Indication: RESTLESSNESS
     Dosage: 100 MG (100 MG, 1 IN 1 D), ORAL
     Route: 048
     Dates: start: 20060814
  2. LEVODOPA/CARBIDOPA (CARBIDOPA, LEVODOPA) [Suspect]
     Indication: PARKINSON'S DISEASE
     Dosage: (DAILY), ORAL
     Route: 048
     Dates: start: 20030301
  3. HALOPERIDOL [Suspect]
     Indication: HALLUCINATION, VISUAL
     Dosage: 0.3 MG (0.3 MG), ORAL
     Route: 048
     Dates: start: 20060809, end: 20060809
  4. SEROQUEL [Suspect]
     Indication: HALLUCINATION, VISUAL
     Dosage: 12.5 MG (12.5 MG, 1 IN 1 D), ORAL
     Route: 048
     Dates: start: 20060810, end: 20060815
  5. CLOZAPINE [Suspect]
     Indication: HALLUCINATION, VISUAL
     Dosage: 12.5 MG (12.5 MG, 1 IN 1 D), ORAL
     Route: 048
     Dates: start: 20060819, end: 20060913
  6. EFFEXOR [Suspect]
     Indication: DEPRESSION
     Dosage: (75 MG), ORAL
     Route: 048
     Dates: start: 20060822
  7. TOLTERODINE TARTRATE [Concomitant]
  8. FOSAMAX [Concomitant]
  9. PLANT ALKALOIDS AND OTHER NATURAL PRODUCTS (PLANT ALKALOIDS AND OTHER [Concomitant]
  10. MOVICOL (MACROGOL, POTASSIUM CHLORIDE, SODIUM BICARBONATE, SODIUM CHLO [Concomitant]
  11. MG 5 - LONGORAL (MAGNESIUM ASPARTATE) [Concomitant]
  12. CALCIMAGON-D3 (CALCIUM CARBONATE, COLECALCIFEROL) [Concomitant]
  13. TRUSOPT [Concomitant]
  14. FLORINEF [Concomitant]

REACTIONS (14)
  - AGITATION [None]
  - CONFUSIONAL STATE [None]
  - DISEASE RECURRENCE [None]
  - DISORIENTATION [None]
  - DISTURBANCE IN ATTENTION [None]
  - DRUG INTERACTION [None]
  - FALL [None]
  - GAIT DISTURBANCE [None]
  - HALLUCINATION, VISUAL [None]
  - MOVEMENT DISORDER [None]
  - MUSCULOSKELETAL STIFFNESS [None]
  - NORMOCHROMIC NORMOCYTIC ANAEMIA [None]
  - SOMNOLENCE [None]
  - STUPOR [None]
